FAERS Safety Report 9199054 (Version 2)
Quarter: 2013Q2

REPORT INFORMATION
  Report Type: Spontaneous
  Country: US (occurrence: None)
  Receive Date: 20130325
  Receipt Date: 20130409
  Transmission Date: 20140414
  Serious: No
  Sender: FDA-Public Use
  Company Number: 2013US-004609

PATIENT
  Age: 46 Year
  Sex: Male
  Weight: 102 kg

DRUGS (15)
  1. OMONTYS (PEGINESATIDE) SOLUTION FOR INJECTION [Suspect]
     Indication: NEPHROGENIC ANAEMIA
     Dosage: 4 MG, Q 4 WEEKS, INTRAVENOUS
     Dates: start: 20130122, end: 20130122
  2. GLIPIZIDE (GLIPIZIDE) [Concomitant]
  3. METOPROLOL (METOPROLOL) [Concomitant]
  4. PRILOSEC [Concomitant]
  5. HYDROCODONE/APAP (HYDROCODONE BITARTRATRE, PARACETAOL) [Concomitant]
  6. DIOVAN (VALSARTAN) [Concomitant]
  7. VITAMIN D3 (COLECALCIFEROL) [Concomitant]
  8. SODIUM BICARBONATE (SODIUM BICARBONATE) [Concomitant]
  9. ADALAT (NIFEDIPINE) [Concomitant]
  10. PHOSLO (CALCIUM ACETATE) [Concomitant]
  11. RENVELA (SEVELAMER CARBONATE) [Concomitant]
  12. HEPARIN (HEPARIN) [Concomitant]
  13. LIDOCAINE (LIDOCAINE) [Concomitant]
  14. ZEMPLAR (PARICALCITOL) [Concomitant]
  15. VENOFER [Concomitant]

REACTIONS (4)
  - Pruritus [None]
  - Muscle spasms [None]
  - Hypersensitivity [None]
  - Product quality issue [None]
